FAERS Safety Report 18648937 (Version 1)
Quarter: 2020Q4

REPORT INFORMATION
  Report Type: Spontaneous
  Country: HN (occurrence: HN)
  Receive Date: 20201222
  Receipt Date: 20201222
  Transmission Date: 20210114
  Serious: Yes (Other)
  Sender: FDA-Public Use
  Company Number: HN-PFIZER INC-2020505077

PATIENT
  Age: 68 Year
  Sex: Male

DRUGS (3)
  1. LIPITOR [Suspect]
     Active Substance: ATORVASTATIN CALCIUM
     Dosage: 40 MG 1 DF, DAILY
     Route: 048
     Dates: end: 202008
  2. LIPITOR [Suspect]
     Active Substance: ATORVASTATIN CALCIUM
     Dosage: 40 MG 1DF DAILY
     Route: 048
     Dates: start: 202012
  3. LIPITOR [Suspect]
     Active Substance: ATORVASTATIN CALCIUM
     Dosage: 80 MG 1 DF DAILY
     Route: 048
     Dates: start: 202008, end: 202012

REACTIONS (1)
  - Myocardial infarction [Unknown]
